FAERS Safety Report 11272618 (Version 1)
Quarter: 2015Q3

REPORT INFORMATION
  Report Type: Spontaneous
  Country: CN (occurrence: CN)
  Receive Date: 20150715
  Receipt Date: 20150715
  Transmission Date: 20151125
  Serious: Yes (Hospitalization)
  Sender: FDA-Public Use
  Company Number: CN-JNJFOC-20150704373

PATIENT
  Age: 84 Year
  Sex: Female
  Weight: 53 kg

DRUGS (5)
  1. ACICLOVIR [Suspect]
     Active Substance: ACYCLOVIR
     Indication: HERPES ZOSTER
     Route: 065
     Dates: start: 20150107
  2. TYLENOL [Suspect]
     Active Substance: ACETAMINOPHEN
     Indication: PYREXIA
     Route: 048
     Dates: start: 20150111, end: 20150114
  3. AMINOPHENAZONE W/PHENAZONE/BARBITAL [Suspect]
     Active Substance: AMINOPHENAZONE\ANTIPYRINE\BARBITAL
     Indication: PYREXIA
     Route: 030
     Dates: start: 20150111, end: 20150111
  4. VALACICLOVIR HYDROCHLORIDE [Suspect]
     Active Substance: VALACYCLOVIR HYDROCHLORIDE
     Indication: HERPES ZOSTER
     Route: 048
     Dates: start: 20150107, end: 20150117
  5. LEVOTHYROXINE SODIUM. [Concomitant]
     Active Substance: LEVOTHYROXINE SODIUM
     Indication: BENIGN NEOPLASM OF THYROID GLAND
     Route: 048
     Dates: start: 20150101, end: 20150129

REACTIONS (1)
  - Systemic lupus erythematosus [Recovering/Resolving]

NARRATIVE: CASE EVENT DATE: 20150115
